FAERS Safety Report 9714382 (Version 5)
Quarter: 2014Q1

REPORT INFORMATION
  Report Type: Report from Study
  Country: BE (occurrence: BE)
  Receive Date: 20131126
  Receipt Date: 20140107
  Transmission Date: 20141002
  Serious: Yes (Life-Threatening, Hospitalization)
  Sender: FDA-Public Use
  Company Number: BE-EISAI INC-E7389-02474-CLI-BE

PATIENT
  Age: 40 Year
  Sex: Female
  Weight: 65 kg

DRUGS (13)
  1. E7389 (BOLD) [Suspect]
     Indication: BREAST CANCER
     Route: 041
     Dates: start: 20120507, end: 20120507
  2. MYOLASTAN [Concomitant]
     Route: 048
     Dates: start: 20120428
  3. DEXAMETHASONE [Concomitant]
     Route: 048
  4. DUPHALAC [Concomitant]
     Route: 048
     Dates: start: 20111114
  5. INNOHEP [Concomitant]
     Route: 058
     Dates: start: 20120429
  6. MOTILIUM [Concomitant]
     Route: 048
     Dates: start: 20120430
  7. OXYNORM [Concomitant]
     Route: 048
     Dates: start: 20111114, end: 20120515
  8. PANTOMED [Concomitant]
     Route: 048
     Dates: start: 20111114
  9. SIPRALEXA [Concomitant]
     Route: 048
     Dates: start: 20111114
  10. SOFTENE [Concomitant]
     Route: 048
     Dates: start: 20120106
  11. STILNOCT [Concomitant]
     Route: 048
     Dates: start: 20120428
  12. XANAX [Concomitant]
     Route: 048
     Dates: start: 20111114
  13. AMOXICILLIN [Concomitant]
     Indication: ACUTE TONSILLITIS
     Dates: start: 201205

REACTIONS (3)
  - Febrile neutropenia [Recovered/Resolved]
  - Tonsillitis [Recovered/Resolved]
  - Back pain [Recovered/Resolved]
